FAERS Safety Report 20541285 (Version 1)
Quarter: 2022Q1

REPORT INFORMATION
  Report Type: Spontaneous
  Country: US (occurrence: US)
  Receive Date: 20220302
  Receipt Date: 20220302
  Transmission Date: 20220423
  Serious: Yes (Life-Threatening, Hospitalization, Other)
  Sender: FDA-Public Use
  Company Number: US-MLMSERVICE-20211005-3147274-1

PATIENT
  Age: 9 Month
  Sex: Male

DRUGS (1)
  1. DURAGESIC [Suspect]
     Active Substance: FENTANYL
     Indication: Pain
     Dosage: FENTANYL PATCH WAS FOUND ADHERED TO HIS SOFT PALATE
     Route: 048

REACTIONS (19)
  - Neurotoxicity [Recovering/Resolving]
  - Encephalomalacia [Recovering/Resolving]
  - Bradycardia [Recovering/Resolving]
  - Brain oedema [Recovering/Resolving]
  - Gaze palsy [Recovering/Resolving]
  - Hydrocephalus [Recovering/Resolving]
  - Hypoxia [Recovering/Resolving]
  - Dysmetria [Recovering/Resolving]
  - Miosis [Recovering/Resolving]
  - Hypoglycaemia [Recovering/Resolving]
  - Somnolence [Recovering/Resolving]
  - Accidental exposure to product by child [Recovering/Resolving]
  - Apraxia [Recovering/Resolving]
  - Hypokinesia [Recovering/Resolving]
  - Brain herniation [Recovering/Resolving]
  - Accidental overdose [Recovering/Resolving]
  - Toxicity to various agents [Recovering/Resolving]
  - Incorrect route of product administration [Unknown]
  - Off label use [Unknown]
